FAERS Safety Report 7774964-2 (Version None)
Quarter: 2011Q3

REPORT INFORMATION
  Report Type: 
  Country: None (occurrence: None)
  Receive Date: 20110923
  Receipt Date: 20110919
  Transmission Date: 20111222
  Serious: Yes (Hospitalization, Disabling, Congenital Anomaly, Other)
  Sender: FDA-Public Use
  Company Number: GXKR2011DE02843

PATIENT
  Sex: Female
  Weight: 2.785 kg

DRUGS (6)
  1. ENOXAPARIN SODIUM [Concomitant]
     Dosage: MATERNAL DOSE 40 MG, DAILY
     Route: 064
  2. METOPROLOL SUCCINATE [Suspect]
     Dosage: MATERNAL DOSE 47.5 MG, DAILY - REDUCTION TO 11.875 MG/DAY (DATE UNKNOWN)
     Route: 064
  3. TAMBOCOR [Suspect]
     Dosage: MATERNAL DOSE 100 MG, DAILY
     Route: 064
  4. METOPROLOL SUCCINATE [Suspect]
     Dosage: MATERNAL DOSE 11.875 MG, DAILY
     Route: 064
  5. FOLSAN [Concomitant]
     Dosage: MATERNAL DOSE 5 MG, DAILY
     Route: 064
  6. TAMBOCOR [Suspect]
     Dosage: MATERNAL DOSE 200 MG, DAILY - REDUCED TO 100 MG/DAY (DATE UNKNOWN)
     Route: 064

REACTIONS (7)
  - MACROGLOSSIA [None]
  - SMALL FOR DATES BABY [None]
  - ATRIAL SEPTAL DEFECT [None]
  - MATERNAL EXPOSURE DURING PREGNANCY [None]
  - FOETAL GROWTH RESTRICTION [None]
  - CONGENITAL HYPOTHYROIDISM [None]
  - PATENT DUCTUS ARTERIOSUS [None]
